FAERS Safety Report 5958728-8 (Version None)
Quarter: 2008Q4

REPORT INFORMATION
  Report Type: 
  Country: None (occurrence: None)
  Receive Date: 20081119
  Receipt Date: 20081114
  Transmission Date: 20090506
  Serious: Yes (Hospitalization, Other)
  Sender: FDA-Public Use
  Company Number: CH-ROXANE LABORATORIES, INC.-2008-RO-00230RO

PATIENT
  Age: 62 Year
  Sex: Male

DRUGS (20)
  1. PREDNISONE TAB [Suspect]
     Indication: IMMUNOSUPPRESSANT DRUG THERAPY
  2. PREDNISONE TAB [Suspect]
     Dosage: 7.5MG
  3. AZATHIOPRINE [Suspect]
     Indication: GINGIVAL HYPERPLASIA
  4. CLARITHROMYCIN [Suspect]
     Indication: RHODOCOCCUS INFECTION
     Dosage: 750MG
  5. CYCLOSPORINE [Suspect]
     Indication: IMMUNOSUPPRESSANT DRUG THERAPY
  6. CYCLOSPORINE [Suspect]
  7. CYCLOSPORINE [Suspect]
     Dosage: 100MG
  8. MYFORTIC [Suspect]
     Indication: IMMUNOSUPPRESSANT DRUG THERAPY
  9. MYFORTIC [Suspect]
     Dosage: 1080MG
  10. MYFORTIC [Suspect]
     Dosage: 720MG
  11. MYFORTIC [Suspect]
     Dosage: 1080MG
  12. SIMVASTATIN [Suspect]
     Dosage: 40MG
  13. ASPIRIN [Suspect]
     Dosage: 100MG
  14. ESOMEPRAZOLE MAGNESIUM [Suspect]
     Dosage: 20MG
  15. ANTIHYPERTENSIVES [Suspect]
  16. VITAMIN D [Suspect]
  17. ALENDRONIC ACID [Suspect]
  18. AMOXICILLIN + CLAVULANATE POTASSIUM [Concomitant]
     Indication: PNEUMONIA
     Dosage: 3.6G
     Route: 042
  19. VANCOMYCIN [Concomitant]
     Indication: RHODOCOCCUS INFECTION
     Route: 042
  20. CIPROFLOXACIN [Concomitant]
     Indication: RHODOCOCCUS INFECTION
     Dosage: 1000MG
     Route: 048

REACTIONS (11)
  - BLOOD CREATINE PHOSPHOKINASE INCREASED [None]
  - CHRONIC ALLOGRAFT NEPHROPATHY [None]
  - DRUG INTERACTION [None]
  - FISTULA [None]
  - GINGIVAL HYPERPLASIA [None]
  - MYOPATHY [None]
  - PARAPARESIS [None]
  - PNEUMONIA [None]
  - PULMONARY MASS [None]
  - RHODOCOCCUS INFECTION [None]
  - SUBCUTANEOUS EMPHYSEMA [None]
